FAERS Safety Report 5028828-8 (Version None)
Quarter: 2006Q2

REPORT INFORMATION
  Report Type: 
  Country: None (occurrence: None)
  Receive Date: 20060619
  Receipt Date: 20060614
  Transmission Date: 20061013
  Serious: Yes (Death)
  Sender: FDA-Public Use
  Company Number: US-BRISTOL-MYERS SQUIBB COMPANY-13411590

PATIENT
  Sex: Male

DRUGS (2)
  1. COUMADIN [Suspect]
     Indication: MYOCARDIAL INFARCTION
  2. PLAVIX [Suspect]
     Indication: MYOCARDIAL INFARCTION

REACTIONS (3)
  - ARRHYTHMIA [None]
  - INTERNATIONAL NORMALISED RATIO ABNORMAL [None]
  - TREATMENT NONCOMPLIANCE [None]
